FAERS Safety Report 4423211-8 (Version None)
Quarter: 2004Q3

REPORT INFORMATION
  Report Type: 
  Country: None (occurrence: None)
  Receive Date: 20040809
  Receipt Date: 20040723
  Transmission Date: 20050211
  Serious: Yes (Hospitalization, Disabling)
  Sender: FDA-Public Use
  Company Number: FI-2004-025325

PATIENT
  Age: 38 Year
  Sex: Female

DRUGS (4)
  1. BETAFERON VS. PLACEBO S.C. (BETAFERON (SH Y 579E)) [Suspect]
     Indication: MULTIPLE SCLEROSIS
     Dosage: 8 MIU, EVERY 2D, SUBCUTANEOUS
     Route: 058
     Dates: start: 20030213, end: 20040501
  2. ACETAMINOPHEN [Concomitant]
  3. VITAMINE C [Concomitant]
  4. CORTICOSTEROIDS [Concomitant]

REACTIONS (3)
  - ACUTE PSYCHOSIS [None]
  - DEPRESSION [None]
  - FATIGUE [None]
